FAERS Safety Report 20122850 (Version 1)
Quarter: 2021Q4

REPORT INFORMATION
  Report Type: Spontaneous
  Country: FR (occurrence: FR)
  Receive Date: 20211129
  Receipt Date: 20211129
  Transmission Date: 20220303
  Serious: Yes (Hospitalization)
  Sender: FDA-Public Use
  Company Number: FR-BAUSCH-BL-2021-039063

PATIENT
  Age: 63 Year
  Sex: Male

DRUGS (2)
  1. RIFAXIMIN [Suspect]
     Active Substance: RIFAXIMIN
     Indication: Hepatic encephalopathy
     Dosage: 500 MILLIGRAM TWO DOSAGE FORM ADMINISTERED DAILY.
     Route: 048
     Dates: start: 20190606, end: 20190707
  2. PANTOPRAZOLE SODIUM [Suspect]
     Active Substance: PANTOPRAZOLE SODIUM
     Indication: Hepatic cirrhosis
     Dosage: ONE DOSAGE FORM ADMINISTERED DAILY.
     Route: 048
     Dates: start: 20190613, end: 20190703

REACTIONS (4)
  - Condition aggravated [Recovering/Resolving]
  - Eosinophilia [Recovered/Resolved]
  - Renal tubular necrosis [Recovering/Resolving]
  - Rash maculo-papular [Recovering/Resolving]

NARRATIVE: CASE EVENT DATE: 20190601
